FAERS Safety Report 7349699-0 (Version None)
Quarter: 2011Q1

REPORT INFORMATION
  Report Type: 
  Country: None (occurrence: None)
  Receive Date: 20110314
  Receipt Date: 20100930
  Transmission Date: 20110831
  Serious: Yes (Hospitalization, Other)
  Sender: FDA-Public Use
  Company Number: US-BAYER-200934042NA

PATIENT
  Sex: Female

DRUGS (6)
  1. TRAMADOL [Concomitant]
  2. CLINDAMYCIN [Concomitant]
  3. YAZ [Suspect]
     Indication: PRODUCT USED FOR UNKNOWN INDICATION
     Dosage: YAZ USED IN 2008, UNSURE OF THE DATES JUNE-NOVEMBER
     Route: 048
     Dates: start: 20080101, end: 20080615
  4. YASMIN [Suspect]
     Indication: PRODUCT USED FOR UNKNOWN INDICATION
     Route: 048
     Dates: start: 20081001, end: 20081115
  5. ZITHROMAX [Concomitant]
  6. IBUPROFEN [Concomitant]

REACTIONS (5)
  - CHOLELITHIASIS [None]
  - MENTAL DISORDER [None]
  - PULMONARY EMBOLISM [None]
  - PAIN [None]
  - THROMBOCYTOPENIA [None]
